FAERS Safety Report 25556977 (Version 1)
Quarter: 2025Q3

REPORT INFORMATION
  Report Type: Spontaneous
  Country: US (occurrence: US)
  Receive Date: 20250715
  Receipt Date: 20250715
  Transmission Date: 20251021
  Serious: No
  Sender: NOVO NORDISK
  Company Number: US-NOVOPROD-1275341

PATIENT
  Age: 77 Year
  Sex: Female

DRUGS (1)
  1. OZEMPIC [Suspect]
     Active Substance: SEMAGLUTIDE
     Indication: Type 2 diabetes mellitus
     Dosage: 0.5MG ONCE WEEKLY
     Route: 058
     Dates: start: 202403

REACTIONS (11)
  - Weight loss poor [Unknown]
  - Tremor [Recovered/Resolved]
  - Anxiety [Unknown]
  - Limb discomfort [Unknown]
  - Blood glucose decreased [Unknown]
  - Dizziness [Unknown]
  - Inadvertent injection air bubble [Unknown]
  - Product use issue [Unknown]
  - Wrong technique in product usage process [Unknown]
  - Off label use [Unknown]
  - Wrong technique in product usage process [Unknown]

NARRATIVE: CASE EVENT DATE: 20240625
